FAERS Safety Report 19631535 (Version 1)
Quarter: 2021Q3

REPORT INFORMATION
  Report Type: Spontaneous
  Country: US (occurrence: US)
  Receive Date: 20210728
  Receipt Date: 20210728
  Transmission Date: 20211014
  Serious: No
  Sender: FDA-Public Use
  Company Number: US-ROCHE-2645960

PATIENT
  Sex: Female

DRUGS (1)
  1. XELODA [Suspect]
     Active Substance: CAPECITABINE
     Indication: APPENDIX CANCER
     Dosage: ONGOING:YES
     Route: 048
     Dates: start: 20200701

REACTIONS (3)
  - Off label use [Unknown]
  - No adverse event [Unknown]
  - Product use in unapproved indication [Unknown]
